FAERS Safety Report 9415609 (Version 1)
Quarter: 2013Q3

REPORT INFORMATION
  Report Type: Spontaneous
  Country: US (occurrence: US)
  Receive Date: 20130723
  Receipt Date: 20130723
  Transmission Date: 20140515
  Serious: Yes (Death, Hospitalization, Other)
  Sender: FDA-Public Use
  Company Number: US-ROXANE LABORATORIES, INC.-2013-RO-01189RO

PATIENT
  Age: 52 Year
  Sex: Male

DRUGS (18)
  1. CYCLOPHOSPHAMIDE TABLETS USP [Suspect]
     Indication: ANAPLASTIC LARGE-CELL LYMPHOMA
  2. CYCLOPHOSPHAMIDE TABLETS USP [Suspect]
     Indication: T-CELL LYMPHOMA RECURRENT
  3. PREDNISONE [Suspect]
     Indication: ANAPLASTIC LARGE-CELL LYMPHOMA
  4. PREDNISONE [Suspect]
     Indication: VASCULITIS NECROTISING
     Route: 048
  5. METHOTREXATE [Suspect]
     Indication: PROPHYLAXIS AGAINST GRAFT VERSUS HOST DISEASE
  6. DEXAMETHASONE [Suspect]
     Indication: VASCULITIS NECROTISING
  7. DOXORUBICIN [Suspect]
     Indication: ANAPLASTIC LARGE-CELL LYMPHOMA
  8. VINCRISTINE [Suspect]
     Indication: ANAPLASTIC LARGE-CELL LYMPHOMA
  9. IFOSFAMIDE [Suspect]
     Indication: ANAPLASTIC LARGE-CELL LYMPHOMA
  10. CARBOPLATIN [Suspect]
     Indication: ANAPLASTIC LARGE-CELL LYMPHOMA
  11. ETOPOSIDE [Suspect]
     Indication: ANAPLASTIC LARGE-CELL LYMPHOMA
  12. GEMCITABINE [Suspect]
     Indication: ANAPLASTIC LARGE-CELL LYMPHOMA
  13. OXALIPLATIN [Suspect]
     Indication: ANAPLASTIC LARGE-CELL LYMPHOMA
  14. BRENTUXIMAB VEDOTIN [Suspect]
     Indication: ANAPLASTIC LARGE-CELL LYMPHOMA
  15. FLUDARABINE [Suspect]
     Indication: CHEMOTHERAPY
  16. BUSULFAN [Suspect]
     Indication: CHEMOTHERAPY
  17. TACROLIMUS [Suspect]
     Indication: PROPHYLAXIS AGAINST GRAFT VERSUS HOST DISEASE
  18. SIROLIMUS [Suspect]
     Indication: PROPHYLAXIS AGAINST GRAFT VERSUS HOST DISEASE

REACTIONS (6)
  - Sepsis [Fatal]
  - T-cell lymphoma recurrent [Recovered/Resolved]
  - Vasculitis necrotising [Recovered/Resolved]
  - Psychotic disorder [Unknown]
  - Headache [Unknown]
  - Periodontitis [Unknown]
